FAERS Safety Report 4795718-5 (Version None)
Quarter: 2005Q4

REPORT INFORMATION
  Report Type: 
  Country: None (occurrence: None)
  Receive Date: 20051012
  Receipt Date: 20051004
  Transmission Date: 20060501
  Serious: Yes (Death)
  Sender: FDA-Public Use
  Company Number: US-BRISTOL-MYERS SQUIBB COMPANY-13138433

PATIENT
  Age: 39 Year

DRUGS (3)
  1. ARIPIPRAZOLE [Suspect]
     Route: 048
  2. AMITRIPTYLINE [Suspect]
  3. VENLAFAXINE HCL [Suspect]

REACTIONS (3)
  - COMPLETED SUICIDE [None]
  - INTENTIONAL DRUG MISUSE [None]
  - MULTIPLE DRUG OVERDOSE [None]
